FAERS Safety Report 7386801-9 (Version None)
Quarter: 2011Q1

REPORT INFORMATION
  Report Type: 
  Country: None (occurrence: None)
  Receive Date: 20110323
  Receipt Date: 20110314
  Transmission Date: 20110831
  Serious: Yes (Life-Threatening)
  Sender: FDA-Public Use
  Company Number: IDA-00509

PATIENT
  Sex: Female

DRUGS (1)
  1. PRANOLOL (PROPRANOLOL HYDROCHLORIDE) [Suspect]
     Indication: MIGRAINE
     Dates: start: 20100101

REACTIONS (3)
  - POST PROCEDURAL COMPLICATION [None]
  - COUGH [None]
  - HYPOVOLAEMIC SHOCK [None]
